FAERS Safety Report 5128009-3 (Version None)
Quarter: 2006Q4

REPORT INFORMATION
  Report Type: 
  Country: None (occurrence: None)
  Receive Date: 20061016
  Receipt Date: 20060914
  Transmission Date: 20070319
  Serious: Yes (Hospitalization, Other)
  Sender: FDA-Public Use
  Company Number: JP-SANOFI-SYNTHELABO-A01200607739

PATIENT
  Age: 9 Month
  Sex: Male

DRUGS (1)
  1. ZOLPIDEM TARTRATE [Suspect]
     Indication: AFFECT LABILITY
     Route: 063
     Dates: start: 20060913, end: 20060913

REACTIONS (6)
  - COMA [None]
  - DRUG EXPOSURE VIA BREAST MILK [None]
  - DYSKINESIA [None]
  - FALL [None]
  - INSOMNIA [None]
  - NERVOUS SYSTEM DISORDER [None]
